FAERS Safety Report 8061604-0 (Version None)
Quarter: 2012Q1

REPORT INFORMATION
  Report Type: 
  Country: None (occurrence: None)
  Receive Date: 20120122
  Receipt Date: 20120117
  Transmission Date: 20120608
  Serious: Yes (Hospitalization, Other)
  Sender: FDA-Public Use
  Company Number: DE-ROCHE-752147

PATIENT
  Sex: Female
  Weight: 84 kg

DRUGS (4)
  1. HERCEPTIN [Suspect]
     Indication: BREAST CANCER
     Dosage: LOADING DOSAGE: 8 MG/KG
     Route: 042
     Dates: start: 20091123, end: 20101123
  2. KEVATRIL [Concomitant]
  3. DEXAMETHASONE [Concomitant]
  4. UROMITEXAN [Concomitant]

REACTIONS (7)
  - INFECTION [None]
  - EJECTION FRACTION DECREASED [None]
  - CHILLS [None]
  - SOMNOLENCE [None]
  - CARDIAC FAILURE [None]
  - HYPOKALAEMIA [None]
  - HYPERTENSION [None]
